FAERS Safety Report 6223921-6 (Version None)
Quarter: 2009Q2

REPORT INFORMATION
  Report Type: 
  Country: None (occurrence: None)
  Receive Date: 20090612
  Receipt Date: 20090305
  Transmission Date: 20091009
  Serious: No
  Sender: FDA-Public Use
  Company Number: US-ABBOTT-09P-163-0560814-00

PATIENT
  Sex: Male
  Weight: 108.96 kg

DRUGS (6)
  1. HUMIRA [Suspect]
     Indication: PSORIASIS
     Dates: start: 20080101, end: 20081201
  2. HUMIRA [Suspect]
     Dosage: SWITCHED TO SYRINGE
     Dates: start: 20081201
  3. ADVAIR HFA [Concomitant]
     Indication: ASTHMA
  4. ALBUTEROL [Concomitant]
     Indication: ASTHMA
  5. ALLEGRA [Concomitant]
     Indication: HYPERSENSITIVITY
  6. PAXIL [Concomitant]
     Indication: ANXIETY

REACTIONS (2)
  - INCORRECT DOSE ADMINISTERED [None]
  - INJECTION SITE PAIN [None]
